FAERS Safety Report 20065502 (Version 2)
Quarter: 2021Q4

REPORT INFORMATION
  Report Type: Spontaneous
  Country: HR (occurrence: HR)
  Receive Date: 20211113
  Receipt Date: 20211117
  Transmission Date: 20220303
  Serious: Yes (Other)
  Sender: FDA-Public Use
  Company Number: HR-NOVARTISPH-NVSC2021HR237073

PATIENT
  Age: 66 Year
  Sex: Female

DRUGS (3)
  1. BEOVU [Suspect]
     Active Substance: BROLUCIZUMAB-DBLL
     Indication: Neovascular age-related macular degeneration
     Dosage: 6 MG, (LEFT EYE)
     Route: 031
     Dates: start: 20210914
  2. BEOVU [Suspect]
     Active Substance: BROLUCIZUMAB-DBLL
     Dosage: 6 MG, (LEFT EYE)
     Route: 031
     Dates: start: 20211012
  3. DIAMOX SEQUELS [Concomitant]
     Active Substance: ACETAZOLAMIDE
     Indication: Glaucoma
     Dosage: 1 DF, BID
     Route: 048

REACTIONS (11)
  - Retinal haemorrhage [Unknown]
  - Retinal fibrosis [Unknown]
  - Uveitis [Not Recovered/Not Resolved]
  - Vitreous floaters [Unknown]
  - Vision blurred [Unknown]
  - Visual impairment [Not Recovered/Not Resolved]
  - Keratic precipitates [Not Recovered/Not Resolved]
  - Visual acuity reduced [Unknown]
  - Vitreal cells [Unknown]
  - Ocular hyperaemia [Recovered/Resolved]
  - Anterior chamber cell [Recovering/Resolving]

NARRATIVE: CASE EVENT DATE: 20211012
